FAERS Safety Report 9763550 (Version 1)
Quarter: 2013Q4

REPORT INFORMATION
  Report Type: Spontaneous
  Country: US (occurrence: US)
  Receive Date: 20131216
  Receipt Date: 20131216
  Transmission Date: 20140711
  Serious: Yes (Death)
  Sender: FDA-Public Use
  Company Number: CHPA2013US018429

PATIENT
  Age: 52 Year
  Sex: Male

DRUGS (2)
  1. MAALOX UNKNOWN [Suspect]
     Indication: GASTRIC ULCER
     Route: 048
  2. MAALOX UNKNOWN [Suspect]
     Indication: OFF LABEL USE

REACTIONS (1)
  - Myocardial infarction [Fatal]
